FAERS Safety Report 13605965 (Version 2)
Quarter: 2017Q3

REPORT INFORMATION
  Report Type: Spontaneous
  Country: US (occurrence: US)
  Receive Date: 20170602
  Receipt Date: 20170713
  Transmission Date: 20171127
  Serious: No
  Sender: FDA-Public Use
  Company Number: US-PFIZER INC-2017239887

PATIENT
  Age: 57 Year
  Sex: Female
  Weight: 63.5 kg

DRUGS (3)
  1. OXYCODONE [Interacting]
     Active Substance: OXYCODONE
     Indication: BACK PAIN
     Dosage: UNK, 1X/DAY [5/325MG HALF TABLET ONCE DAILY]
     Dates: start: 2014, end: 20170509
  2. DESVENLAFAXINE SUCCINATE MONOHYDRATE [Suspect]
     Active Substance: DESVENLAFAXINE SUCCINATE
     Indication: DEPRESSION
     Dosage: 25 MG, DAILY (EVERY DAY)
  3. DESVENLAFAXINE SUCCINATE MONOHYDRATE [Interacting]
     Active Substance: DESVENLAFAXINE SUCCINATE
     Indication: ANXIETY
     Dosage: UNK, ALTERNATE DAY [EVERY OTHER DAY]
     Dates: start: 201701, end: 20170509

REACTIONS (1)
  - Drug interaction [Unknown]
